FAERS Safety Report 19198747 (Version 2)
Quarter: 2021Q2

REPORT INFORMATION
  Report Type: Report from Study
  Country: FR (occurrence: FR)
  Receive Date: 20210429
  Receipt Date: 20210528
  Transmission Date: 20210717
  Serious: Yes (Hospitalization)
  Sender: FDA-Public Use
  Company Number: FR-ELI_LILLY_AND_COMPANY-FR202104010092

PATIENT
  Age: 72 Year
  Sex: Female
  Weight: 56 kg

DRUGS (2)
  1. ETESEVIMAB. [Suspect]
     Active Substance: ETESEVIMAB
     Indication: COVID-19
     Dosage: UNK, UNKNOWN
     Route: 065
     Dates: start: 20210410, end: 20210410
  2. BAMLANIVIMAB. [Suspect]
     Active Substance: BAMLANIVIMAB
     Indication: COVID-19
     Dosage: UNK, UNKNOWN
     Route: 065
     Dates: start: 20210410, end: 20210410

REACTIONS (1)
  - COVID-19 [Recovered/Resolved]
